FAERS Safety Report 6753357-0 (Version None)
Quarter: 2010Q2

REPORT INFORMATION
  Report Type: 
  Country: None (occurrence: None)
  Receive Date: 20100603
  Receipt Date: 20100527
  Transmission Date: 20101027
  Serious: Yes (Hospitalization)
  Sender: FDA-Public Use
  Company Number: CA-ASTRAZENECA-2010SE23111

PATIENT
  Age: 66 Year
  Sex: Male
  Weight: 65.3 kg

DRUGS (2)
  1. CRESTOR [Suspect]
     Indication: DYSLIPIDAEMIA
     Route: 048
     Dates: start: 20091222, end: 20100130
  2. DOVOBET [Concomitant]
     Indication: PSORIASIS
     Dosage: HS OD
     Route: 061

REACTIONS (1)
  - DIPLOPIA [None]
